FAERS Safety Report 14273495 (Version 1)
Quarter: 2017Q4

REPORT INFORMATION
  Report Type: Spontaneous
  Country: US (occurrence: US)
  Receive Date: 20171211
  Receipt Date: 20171211
  Transmission Date: 20180321
  Serious: Yes (Other)
  Sender: FDA-Public Use
  Company Number: US-ASTRAZENECA-2017SF25353

PATIENT
  Age: 75 Year
  Sex: Female
  Weight: 93 kg

DRUGS (4)
  1. FASLODEX [Suspect]
     Active Substance: FULVESTRANT
     Indication: OESTROGEN RECEPTOR POSITIVE BREAST CANCER
     Dosage: ONE INJECTION TO EACH BUTTOCK EVERY 4 WEEKS
     Route: 030
     Dates: start: 2013
  2. FLUTICASONE. [Concomitant]
     Active Substance: FLUTICASONE
     Indication: CHRONIC SINUSITIS
     Route: 045
     Dates: start: 201704
  3. FASLODEX [Suspect]
     Active Substance: FULVESTRANT
     Indication: PROGESTERONE RECEPTOR ASSAY
     Dosage: ONE INJECTION TO EACH BUTTOCK EVERY 4 WEEKS
     Route: 030
     Dates: start: 2013
  4. AZELASTINE HYDROCHLORIDE. [Concomitant]
     Active Substance: AZELASTINE HYDROCHLORIDE
     Indication: CHRONIC SINUSITIS
     Route: 045
     Dates: start: 2017

REACTIONS (3)
  - Malignant neoplasm progression [Unknown]
  - Pain in extremity [Not Recovered/Not Resolved]
  - Breast mass [Not Recovered/Not Resolved]

NARRATIVE: CASE EVENT DATE: 2013
